FAERS Safety Report 9549316 (Version 1)
Quarter: 2013Q3

REPORT INFORMATION
  Report Type: Spontaneous
  Country: US (occurrence: US)
  Receive Date: 20130924
  Receipt Date: 20130924
  Transmission Date: 20140515
  Serious: Yes (Life-Threatening, Hospitalization, Other)
  Sender: FDA-Public Use
  Company Number: US-ACTAVIS-2013-16425

PATIENT
  Age: 29 Year
  Sex: Female

DRUGS (5)
  1. BUPROPION HYDROCHLORIDE (WATSON LABORATORIES) [Suspect]
     Indication: INTENTIONAL OVERDOSE
     Dosage: UNK
     Route: 048
  2. GABAPENTIN (AELLC) [Suspect]
     Indication: INTENTIONAL OVERDOSE
     Dosage: 2100 MG, SINGLE
     Route: 048
  3. GABAPENTIN (AELLC) [Suspect]
     Indication: MOVEMENT DISORDER
  4. DEXTROAMPHETAMINE /00016601/ [Concomitant]
     Indication: ATTENTION DEFICIT/HYPERACTIVITY DISORDER
     Dosage: UNK
     Route: 065
  5. AMPHETAMINE [Concomitant]
     Indication: ATTENTION DEFICIT/HYPERACTIVITY DISORDER
     Dosage: UNK
     Route: 065

REACTIONS (7)
  - Electrocardiogram QT prolonged [Recovered/Resolved]
  - Sinus tachycardia [Recovered/Resolved]
  - Cardiogenic shock [Recovered/Resolved]
  - Grand mal convulsion [Recovered/Resolved]
  - Electroencephalogram abnormal [Recovered/Resolved]
  - Metabolic acidosis [Recovered/Resolved]
  - Intentional overdose [Unknown]
